FAERS Safety Report 5411915-X (Version None)
Quarter: 2007Q3

REPORT INFORMATION
  Report Type: 
  Country: None (occurrence: None)
  Receive Date: 20070813
  Receipt Date: 20070807
  Transmission Date: 20080115
  Serious: Yes (Hospitalization)
  Sender: FDA-Public Use
  Company Number: FR-ELI_LILLY_AND_COMPANY-FR200703001911

PATIENT
  Age: 82 Year
  Sex: Female
  Weight: 45 kg

DRUGS (11)
  1. FORTEO [Suspect]
     Indication: OSTEOPOROSIS
     Dosage: 20 UG, DAILY (1/D)
     Route: 058
     Dates: start: 20050706, end: 20060601
  2. FORTEO [Suspect]
     Dosage: 20 UG, DAILY (1/D)
     Route: 058
     Dates: start: 20060701, end: 20070315
  3. RENITEC [Concomitant]
     Dosage: 1 D/F, DAILY (1/D)
     Route: 048
  4. MONOTILDIEM [Concomitant]
     Dosage: 2 D/F, DAILY (1/D)
     Route: 048
  5. ELISOR [Concomitant]
     Dosage: 1 D/F, DAILY (1/D)
     Route: 048
  6. ALLOPURINOL [Concomitant]
     Dosage: 1 D/F, DAILY (1/D)
     Route: 048
  7. ADANCOR [Concomitant]
     Dosage: 2 D/F, DAILY (1/D)
     Route: 048
  8. KARDEGIC [Concomitant]
  9. CALCIDOSE [Concomitant]
     Indication: OSTEOPOROSIS
     Dosage: 2 D/F, DAILY (1/D)
     Route: 048
     Dates: start: 20050527
  10. PIASCLEDINE [Concomitant]
     Indication: ARTHRITIS
     Dosage: 1 D/F, DAILY (1/D)
     Route: 048
     Dates: start: 20050527
  11. STEROGYL [Concomitant]
     Indication: VITAMIN D DEFICIENCY
     Dosage: 30 D/F, DAILY (1/D)
     Route: 048
     Dates: start: 20050527

REACTIONS (4)
  - DIARRHOEA [None]
  - GENERAL PHYSICAL HEALTH DETERIORATION [None]
  - PERIDIVERTICULAR ABSCESS [None]
  - VOMITING [None]
